FAERS Safety Report 15434464 (Version 2)
Quarter: 2018Q4

REPORT INFORMATION
  Report Type: Report from Study
  Country: US (occurrence: US)
  Receive Date: 20180927
  Receipt Date: 20181129
  Transmission Date: 20190204
  Serious: Yes (Other)
  Sender: FDA-Public Use
  Company Number: PHEH2018US039313

PATIENT
  Sex: Male

DRUGS (1)
  1. ENTRESTO [Suspect]
     Active Substance: SACUBITRIL\VALSARTAN
     Indication: CARDIAC FAILURE
     Dosage: UNK
     Route: 048

REACTIONS (11)
  - Fatigue [Recovering/Resolving]
  - Heart rate irregular [Unknown]
  - Asthenia [Unknown]
  - Blood pressure increased [Unknown]
  - Anxiety [Recovering/Resolving]
  - Therapeutic response decreased [Unknown]
  - Chest pain [Recovering/Resolving]
  - Heart rate decreased [Recovering/Resolving]
  - Weight increased [Unknown]
  - Blood pressure decreased [Recovering/Resolving]
  - Cardiomyopathy [Unknown]
